FAERS Safety Report 4659208-2 (Version None)
Quarter: 2005Q2

REPORT INFORMATION
  Report Type: 
  Country: None (occurrence: None)
  Receive Date: 20050511
  Receipt Date: 20050504
  Transmission Date: 20051028
  Serious: Yes (Hospitalization)
  Sender: FDA-Public Use
  Company Number: US-JNJFOC-20050302990

PATIENT
  Sex: Female
  Weight: 55.79 kg

DRUGS (1)
  1. DURAGESIC-100 [Suspect]
     Route: 062
     Dates: start: 19900101

REACTIONS (8)
  - APPLICATION SITE IRRITATION [None]
  - CHRONIC TONSILLITIS [None]
  - COCCIDIOIDOMYCOSIS [None]
  - HYPERHIDROSIS [None]
  - OVARIAN CYST [None]
  - RAYNAUD'S PHENOMENON [None]
  - SWELLING [None]
  - SYSTEMIC LUPUS ERYTHEMATOSUS [None]
